FAERS Safety Report 4286105-7 (Version None)
Quarter: 2004Q1

REPORT INFORMATION
  Report Type: 
  Country: None (occurrence: None)
  Receive Date: 20040204
  Receipt Date: 20040204
  Transmission Date: 20041129
  Serious: Yes (Other)
  Sender: FDA-Public Use
  Company Number: None

PATIENT
  Age: 32 Year
  Sex: Female
  Weight: 52.1637 kg

DRUGS (2)
  1. PAXIL [Suspect]
     Indication: PANIC DISORDER
     Dosage: PAXIL 20 MG ORAL
     Route: 048
     Dates: start: 19990801, end: 20000801
  2. PAXIL CR [Suspect]
     Indication: PANIC DISORDER
     Dosage: PAXIL CR 37.5 MG ORAL
     Route: 048
     Dates: start: 20030101, end: 20030717

REACTIONS (9)
  - ABNORMAL BEHAVIOUR [None]
  - ALCOHOLISM [None]
  - DRUG DEPENDENCE [None]
  - IMPULSIVE BEHAVIOUR [None]
  - LEGAL PROBLEM [None]
  - LOSS OF CONSCIOUSNESS [None]
  - LOSS OF EMPLOYMENT [None]
  - MARITAL PROBLEM [None]
  - THINKING ABNORMAL [None]
